FAERS Safety Report 7429101-0 (Version None)
Quarter: 2011Q2

REPORT INFORMATION
  Report Type: 
  Country: None (occurrence: None)
  Receive Date: 20110421
  Receipt Date: 20110411
  Transmission Date: 20111010
  Serious: Yes (Hospitalization)
  Sender: FDA-Public Use
  Company Number: FR-ROCHE-772224

PATIENT
  Sex: Female
  Weight: 74 kg

DRUGS (4)
  1. TRIFLUCAN [Concomitant]
     Route: 048
     Dates: start: 20100101
  2. BEVACIZUMAB [Suspect]
     Dosage: DATE OF LAST DOSE PRIOR TO SAE: 14 MARCH 2011 CUMULATIVE DOSE: 2220 MG
     Route: 042
     Dates: start: 20110214
  3. KEPPRA [Concomitant]
     Indication: CONVULSION PROPHYLAXIS
     Route: 048
     Dates: start: 20100101
  4. MEDROL [Concomitant]
     Route: 048
     Dates: start: 20100101

REACTIONS (1)
  - HYPERGLYCAEMIA [None]
